FAERS Safety Report 9776106 (Version 1)
Quarter: 2013Q4

REPORT INFORMATION
  Report Type: Spontaneous
  Country: US (occurrence: US)
  Receive Date: 20131220
  Receipt Date: 20131220
  Transmission Date: 20140711
  Serious: Yes (Death)
  Sender: FDA-Public Use
  Company Number: 2013SP003675

PATIENT
  Age: 67 Year
  Sex: Female

DRUGS (1)
  1. LUNESTA [Suspect]
     Route: 048

REACTIONS (1)
  - Overdose [Fatal]
